FAERS Safety Report 17139550 (Version 1)
Quarter: 2019Q4

REPORT INFORMATION
  Report Type: Spontaneous
  Country: US (occurrence: US)
  Receive Date: 20191210
  Receipt Date: 20191210
  Transmission Date: 20200122
  Serious: Yes (Disabling)
  Sender: FDA-Public Use
  Company Number: None

PATIENT
  Age: 10 Year
  Sex: Female

DRUGS (1)
  1. MIRALAX [Suspect]
     Active Substance: POLYETHYLENE GLYCOL 3350
     Indication: CONSTIPATION

REACTIONS (8)
  - Product administered to patient of inappropriate age [None]
  - Social anxiety disorder [None]
  - Attention deficit/hyperactivity disorder [None]
  - Product use issue [None]
  - Anxiety [None]
  - Autism spectrum disorder [None]
  - Aggression [None]
  - Product prescribing issue [None]
